FAERS Safety Report 8648113 (Version 2)
Quarter: 2012Q4

REPORT INFORMATION
  Report Type: 
  Country: US (occurrence: US)
  Receive Date: 20120703
  Receipt Date: 20120913
  Transmission Date: 20130627
  Serious: Yes (Hospitalization)
  Sender: FDA-Public Use
  Company Number: US-INCYTE CORPORATION-2012IN000745

PATIENT
  Age: 71 None
  Sex: Male
  Weight: 82.99 kg

DRUGS (6)
  1. JAKAFI [Suspect]
     Indication: MYELOFIBROSIS
     Dosage: 20 mg, bid
     Route: 048
     Dates: start: 20120406, end: 20120504
  2. JAKAFI [Suspect]
     Dosage: 20 mg, (alternate between 20 mg daily and 20mg bid X 1 week, then resume 20 mg bid)
     Dates: start: 20120504
  3. PRILOSEC [Concomitant]
     Dosage: 40 mg, qd
  4. ASPIRIN [Concomitant]
     Dosage: 81 mg, qd
  5. LISINOPRIL [Concomitant]
     Dosage: 20 mg, qd
  6. HYTRIN [Concomitant]
     Dosage: 5 mg, qd

REACTIONS (2)
  - Pancytopenia [Recovered/Resolved]
  - Anaemia [Recovered/Resolved]
